FAERS Safety Report 8159627-6 (Version None)
Quarter: 2012Q1

REPORT INFORMATION
  Report Type: 
  Country: None (occurrence: None)
  Receive Date: 20120216
  Receipt Date: 20120131
  Transmission Date: 20120608
  Serious: Yes (Life-Threatening)
  Sender: FDA-Public Use
  Company Number: DSA_54907_2012

PATIENT
  Age: 90 Year
  Sex: Female

DRUGS (10)
  1. VALERGAN [Concomitant]
  2. ZOCOR [Concomitant]
  3. LEVOTHYROXINE SODIUM [Concomitant]
  4. ALLOPURINOL [Concomitant]
  5. DIURAL [Concomitant]
  6. UNILOC [Concomitant]
  7. ENALAPRIL MALEATE [Suspect]
     Indication: HYPERTENSION
     Dosage: 2.5 MG, QD, ORAL
     Route: 048
     Dates: start: 20110719, end: 20110729
  8. TROPBE [Concomitant]
  9. ASPIRIN [Concomitant]
  10. NORVASC [Concomitant]

REACTIONS (3)
  - ANGIOEDEMA [None]
  - SWOLLEN TONGUE [None]
  - RESPIRATORY FAILURE [None]
